FAERS Safety Report 8412398-8 (Version None)
Quarter: 2012Q2

REPORT INFORMATION
  Report Type: 
  Country: None (occurrence: None)
  Receive Date: 20120605
  Receipt Date: 20120523
  Transmission Date: 20120825
  Serious: Yes (Other)
  Sender: FDA-Public Use
  Company Number: US-ELI_LILLY_AND_COMPANY-US201204007570

PATIENT
  Sex: Female

DRUGS (20)
  1. EFFIENT [Concomitant]
     Dosage: UNK, UNKNOWN
  2. ALBUTEROL [Concomitant]
     Dosage: UNK, UNKNOWN
  3. CYMBALTA [Suspect]
     Dosage: UNK, UNKNOWN
  4. NOVOLOG [Concomitant]
     Dosage: UNK, UNKNOWN
  5. LANTUS [Concomitant]
     Dosage: UNK, UNKNOWN
  6. FLONASE [Concomitant]
     Dosage: UNK, UNKNOWN
  7. ZOFRAN [Concomitant]
     Dosage: UNK, UNKNOWN
  8. AMBIEN [Concomitant]
     Dosage: UNK, UNKNOWN
  9. ZANAFLEX [Concomitant]
     Dosage: UNK, UNKNOWN
  10. PROTONIX [Concomitant]
     Dosage: UNK, UNKNOWN
  11. BUSPAR [Concomitant]
     Dosage: UNK, UNKNOWN
  12. FISH OIL [Concomitant]
     Dosage: UNK, UNKNOWN
  13. ASPIRIN [Concomitant]
     Dosage: UNK, UNKNOWN
  14. COREG [Concomitant]
     Dosage: UNK, UNKNOWN
  15. LASIX [Concomitant]
     Dosage: UNK, UNKNOWN
  16. NITROSTAT [Concomitant]
     Dosage: UNK, UNKNOWN
  17. LOPID [Concomitant]
     Dosage: UNK, UNKNOWN
  18. POTASSIUM CHLORIDE [Concomitant]
     Dosage: UNK, UNKNOWN
  19. REGLAN [Concomitant]
     Dosage: UNK, UNKNOWN
  20. LISINOPRIL [Concomitant]
     Dosage: UNK, UNKNOWN

REACTIONS (1)
  - ERYTHEMA MULTIFORME [None]
